FAERS Safety Report 23453023 (Version 1)
Quarter: 2024Q1

REPORT INFORMATION
  Report Type: Report from Study
  Country: CA (occurrence: CA)
  Receive Date: 20240129
  Receipt Date: 20240129
  Transmission Date: 20240409
  Serious: Yes (Death, Hospitalization, Other)
  Sender: FDA-Public Use
  Company Number: CA-PFIZER INC-202400023588

PATIENT
  Age: 85 Year
  Sex: Female

DRUGS (1)
  1. RITUXIMAB [Suspect]
     Active Substance: RITUXIMAB
     Indication: Anti factor VIII antibody positive
     Dosage: 700 MG
     Route: 042

REACTIONS (3)
  - Death [Fatal]
  - Gastrointestinal haemorrhage [Fatal]
  - Off label use [Unknown]
